FAERS Safety Report 5574064-6 (Version None)
Quarter: 2007Q4

REPORT INFORMATION
  Report Type: 
  Country: None (occurrence: None)
  Receive Date: 20071226
  Receipt Date: 20071220
  Transmission Date: 20080405
  Serious: Yes (Hospitalization)
  Sender: FDA-Public Use
  Company Number: FR-GILEAD-2007-0014730

PATIENT
  Sex: Male
  Weight: 59 kg

DRUGS (3)
  1. TRUVADA [Suspect]
     Indication: HIV INFECTION
     Route: 048
     Dates: start: 20071018, end: 20071118
  2. KALETRA [Concomitant]
     Indication: HIV INFECTION
     Route: 048
     Dates: start: 20071018
  3. PENTACARINAT [Concomitant]

REACTIONS (5)
  - HEADACHE [None]
  - HYPERHIDROSIS [None]
  - LOSS OF CONSCIOUSNESS [None]
  - MALAISE [None]
  - VERTIGO [None]
